FAERS Safety Report 18035605 (Version 1)
Quarter: 2020Q3

REPORT INFORMATION
  Report Type: Spontaneous
  Country: NL (occurrence: NL)
  Receive Date: 20200717
  Receipt Date: 20200717
  Transmission Date: 20201103
  Serious: Yes (Other)
  Sender: FDA-Public Use
  Company Number: NL-ROCHE-2642589

PATIENT
  Sex: Female

DRUGS (1)
  1. AVASTIN [Suspect]
     Active Substance: BEVACIZUMAB
     Indication: OCULAR VASCULAR DISORDER
     Route: 065

REACTIONS (3)
  - Hypersensitivity [Unknown]
  - Off label use [Unknown]
  - Blindness [Unknown]
